FAERS Safety Report 6969424-2 (Version None)
Quarter: 2010Q3

REPORT INFORMATION
  Report Type: 
  Country: None (occurrence: None)
  Receive Date: 20100902
  Receipt Date: 20100819
  Transmission Date: 20110219
  Serious: Yes (Other)
  Sender: FDA-Public Use
  Company Number: 1000015970

PATIENT
  Age: 39 Year
  Sex: Male

DRUGS (3)
  1. ESCITALOPRAM [Suspect]
     Indication: DEPRESSION
     Dosage: 20 MG (20 MG), ORAL
     Route: 048
  2. ESCITALOPRAM [Suspect]
     Indication: DEPRESSION
     Dosage: 10 MG (10 MG), ORAL
     Route: 048
  3. CLONAZEPAM [Concomitant]

REACTIONS (3)
  - CEREBRAL INFARCTION [None]
  - DEPRESSION [None]
  - MITRAL VALVE PROLAPSE [None]
